FAERS Safety Report 7907179-5 (Version None)
Quarter: 2011Q4

REPORT INFORMATION
  Report Type: 
  Country: None (occurrence: None)
  Receive Date: 20111110
  Receipt Date: 20110726
  Transmission Date: 20120403
  Serious: No
  Sender: FDA-Public Use
  Company Number: US-BAYER-2011-068100

PATIENT

DRUGS (3)
  1. ALEVE (CAPLET) [Suspect]
     Indication: HEADACHE
     Route: 048
  2. ACETAMINOPHEN [Concomitant]
  3. IBUPROFEN (ADVIL) [Concomitant]

REACTIONS (1)
  - HEADACHE [None]
